FAERS Safety Report 9632567 (Version 1)
Quarter: 2013Q4

REPORT INFORMATION
  Report Type: Report from Study
  Country: ZA (occurrence: ZA)
  Receive Date: 20131018
  Receipt Date: 20131018
  Transmission Date: 20140711
  Serious: Yes (Death)
  Sender: FDA-Public Use
  Company Number: ZA-ROCHE-1289898

PATIENT
  Sex: Male

DRUGS (9)
  1. MIRCERA [Suspect]
     Indication: NEPHROGENIC ANAEMIA
     Route: 058
     Dates: start: 20130116
  2. MIRCERA [Suspect]
     Route: 058
     Dates: start: 20100210
  3. MIRCERA [Suspect]
     Route: 058
     Dates: start: 20100614
  4. MIRCERA [Suspect]
     Route: 058
     Dates: start: 20100812
  5. MIRCERA [Suspect]
     Route: 058
     Dates: start: 20110712
  6. MIRCERA [Suspect]
     Route: 058
     Dates: start: 20120117
  7. MIRCERA [Suspect]
     Route: 058
     Dates: start: 20120312
  8. MIRCERA [Suspect]
     Route: 058
     Dates: start: 20120508
  9. MIRCERA [Suspect]
     Route: 058
     Dates: start: 20120913

REACTIONS (1)
  - Death [Fatal]
